FAERS Safety Report 4341552-X (Version None)
Quarter: 2004Q2

REPORT INFORMATION
  Report Type: 
  Country: None (occurrence: None)
  Receive Date: 20040415
  Receipt Date: 20040405
  Transmission Date: 20050107
  Serious: Yes (Hospitalization)
  Sender: FDA-Public Use
  Company Number: 2004CG00676

PATIENT
  Age: 58 Year
  Sex: Male
  Weight: 45 kg

DRUGS (2)
  1. CASODEX [Suspect]
     Indication: PROSTATE CANCER
     Dates: start: 20030911
  2. ZOLADEX [Suspect]
     Indication: PROSTATE CANCER
     Dates: start: 20030911

REACTIONS (3)
  - CONDITION AGGRAVATED [None]
  - PORPHYRIA [None]
  - SERUM FERRITIN INCREASED [None]
